FAERS Safety Report 9261378 (Version 1)
Quarter: 2013Q2

REPORT INFORMATION
  Report Type: Spontaneous
  Country: IT (occurrence: IT)
  Receive Date: 20130429
  Receipt Date: 20130429
  Transmission Date: 20140414
  Serious: Yes (Hospitalization)
  Sender: FDA-Public Use
  Company Number: IT-TEVA-399807ISR

PATIENT
  Age: 55 Year
  Sex: Female

DRUGS (1)
  1. CEFTRIAXONE [Suspect]
     Indication: PNEUMONITIS
     Route: 030
     Dates: start: 20130405, end: 20130405

REACTIONS (5)
  - Face oedema [Unknown]
  - Dyspnoea [Unknown]
  - Hyperaemia [Unknown]
  - Paraesthesia [Unknown]
  - Paraesthesia [Unknown]
